FAERS Safety Report 4943476-3 (Version None)
Quarter: 2006Q1

REPORT INFORMATION
  Report Type: 
  Country: None (occurrence: None)
  Receive Date: 20060309
  Receipt Date: 20060227
  Transmission Date: 20060701
  Serious: Yes (Disabling, Other)
  Sender: FDA-Public Use
  Company Number: 2006029255

PATIENT
  Age: 54 Year
  Sex: Male
  Weight: 127.0072 kg

DRUGS (9)
  1. CALAN [Suspect]
     Indication: HYPERTENSION
     Dosage: 480 MG (240 MG, 2 IN 1 D)
     Dates: start: 19880101
  2. CARDURA [Suspect]
     Indication: HYPERTENSION
     Dosage: 4 MG
     Dates: start: 19880101
  3. HYDROCHLOROTHIAZIDE [Concomitant]
  4. ZOLOFT [Concomitant]
  5. ALTACE [Concomitant]
  6. PROVIGIL [Concomitant]
  7. RITALIN  - SLOW RELEASE (METHYLPHENIDATE HYDROCHLORIDE) [Concomitant]
  8. DRAVOCET (DEXTROPROPOXYPHENE NAPSILATE, PRACETAMOL) [Concomitant]
  9. ETODOLAC [Concomitant]

REACTIONS (6)
  - INTERVERTEBRAL DISC PROTRUSION [None]
  - NARCOLEPSY [None]
  - NECK INJURY [None]
  - ROAD TRAFFIC ACCIDENT [None]
  - ROTATOR CUFF SYNDROME [None]
  - SLEEP APNOEA SYNDROME [None]
